FAERS Safety Report 6672741-7 (Version None)
Quarter: 2010Q2

REPORT INFORMATION
  Report Type: 
  Country: None (occurrence: None)
  Receive Date: 20100408
  Receipt Date: 20100401
  Transmission Date: 20101027
  Serious: Yes (Hospitalization)
  Sender: FDA-Public Use
  Company Number: US-BAYER-201018391NA

PATIENT
  Age: 75 Year
  Sex: Male

DRUGS (1)
  1. NEXAVAR [Suspect]
     Indication: GASTROINTESTINAL STROMAL TUMOUR
     Dosage: UNIT DOSE: 200 MG
     Route: 048
     Dates: start: 20100126

REACTIONS (3)
  - GASTROINTESTINAL STROMAL TUMOUR [None]
  - THROMBOSIS [None]
  - UNEVALUABLE EVENT [None]
